FAERS Safety Report 10358911 (Version 1)
Quarter: 2014Q3

REPORT INFORMATION
  Report Type: Report from Study
  Country: US (occurrence: US)
  Receive Date: 20140804
  Receipt Date: 20140804
  Transmission Date: 20150326
  Serious: Yes (Other)
  Sender: FDA-Public Use
  Company Number: US-BIOGENIDEC-2014BI075246

PATIENT
  Sex: Female

DRUGS (1)
  1. AVONEX [Suspect]
     Active Substance: INTERFERON BETA-1A
     Indication: MULTIPLE SCLEROSIS
     Route: 030
     Dates: start: 20010301

REACTIONS (5)
  - Asthenia [Not Recovered/Not Resolved]
  - Feeling abnormal [Recovered/Resolved]
  - Bone neoplasm [Not Recovered/Not Resolved]
  - Scar [Not Recovered/Not Resolved]
  - Peripheral nerve neurostimulation [Not Recovered/Not Resolved]

NARRATIVE: CASE EVENT DATE: 2014
